FAERS Safety Report 9170867 (Version 2)
Quarter: 2013Q1

REPORT INFORMATION
  Report Type: Spontaneous
  Country: US (occurrence: US)
  Receive Date: 20130319
  Receipt Date: 20130325
  Transmission Date: 20140127
  Serious: Yes (Other)
  Sender: FDA-Public Use
  Company Number: US-PFIZER INC-2013087924

PATIENT
  Age: 48 Year
  Sex: Female
  Weight: 81.63 kg

DRUGS (9)
  1. LYRICA [Suspect]
     Indication: FIBROMYALGIA
     Dosage: 75 MG, AT NIGHT
  2. LYRICA [Suspect]
     Dosage: 150 MG, 1X/DAY
  3. LYRICA [Suspect]
     Dosage: 75 MG, 1X/DAY
     Dates: start: 201303
  4. FLEXERIL [Suspect]
     Dosage: UNK
  5. VICODIN [Suspect]
     Dosage: UNK
  6. TOPAMAX [Suspect]
     Dosage: UNK
  7. LISINOPRIL [Concomitant]
     Dosage: UNK
  8. XANAX [Concomitant]
     Dosage: UNK
  9. TRAZODONE [Concomitant]
     Dosage: UNK

REACTIONS (7)
  - Pharyngeal mass [Not Recovered/Not Resolved]
  - Speech disorder [Unknown]
  - Dizziness [Unknown]
  - Somnolence [Unknown]
  - Weight increased [Unknown]
  - Migraine [Not Recovered/Not Resolved]
  - Sinus disorder [Not Recovered/Not Resolved]
